FAERS Safety Report 4950495-X (Version None)
Quarter: 2006Q1

REPORT INFORMATION
  Report Type: 
  Country: None (occurrence: None)
  Receive Date: 20060322
  Receipt Date: 20060301
  Transmission Date: 20060701
  Serious: Yes (Other)
  Sender: FDA-Public Use
  Company Number: RU-GLAXOSMITHKLINE-B0414306A

PATIENT
  Age: 15 Year
  Sex: Female
  Weight: 60 kg

DRUGS (6)
  1. AUGMENTIN '125' [Suspect]
     Indication: TONSILLITIS
     Dosage: 2000MG PER DAY
     Route: 048
     Dates: start: 20060210, end: 20060213
  2. FLEMOXIN SOLUTAB [Concomitant]
     Indication: DRUG USE FOR UNKNOWN INDICATION
     Route: 065
  3. GARGLES [Concomitant]
  4. NITROFURAL [Concomitant]
  5. CAMOMILE [Concomitant]
  6. SAGE [Concomitant]

REACTIONS (7)
  - EOSINOPHILIA [None]
  - FACE OEDEMA [None]
  - HYPERSENSITIVITY [None]
  - LYMPHADENOPATHY [None]
  - OEDEMA [None]
  - OEDEMA MOUTH [None]
  - PYREXIA [None]
